FAERS Safety Report 23646457 (Version 2)
Quarter: 2024Q1

REPORT INFORMATION
  Report Type: Spontaneous
  Country: CN (occurrence: CN)
  Receive Date: 20240319
  Receipt Date: 20240326
  Transmission Date: 20240410
  Serious: Yes (Hospitalization, Other)
  Sender: FDA-Public Use
  Company Number: CN-002147023-NVSC2024CN057147

PATIENT
  Age: 89 Year
  Sex: Male
  Weight: 65 kg

DRUGS (4)
  1. ENTRESTO [Suspect]
     Active Substance: SACUBITRIL\VALSARTAN
     Indication: Hypertension
     Dosage: 100 MG, QD
     Route: 048
     Dates: start: 20231225, end: 20240308
  2. INDOBUFEN [Suspect]
     Active Substance: INDOBUFEN
     Indication: Thrombosis
     Dosage: 0.1 G, BID
     Route: 048
     Dates: start: 20231225, end: 20240308
  3. ERTUGLIFLOZIN [Suspect]
     Active Substance: ERTUGLIFLOZIN
     Indication: Diabetes mellitus
     Dosage: 5 MG, QD
     Route: 048
     Dates: start: 20231225, end: 20240308
  4. METFORMIN HYDROCHLORIDE [Concomitant]
     Active Substance: METFORMIN HYDROCHLORIDE
     Indication: Diabetes mellitus
     Dosage: 0.5 G, BID (SUSTAINED-RELEASE TABLET)
     Route: 048
     Dates: start: 20231225, end: 20240308

REACTIONS (7)
  - Platelet count decreased [Not Recovered/Not Resolved]
  - Oedema [Unknown]
  - Pneumonia [Unknown]
  - Haemoglobin abnormal [Unknown]
  - White blood cell count abnormal [Unknown]
  - Tachypnoea [Unknown]
  - Off label use [Unknown]

NARRATIVE: CASE EVENT DATE: 20231225
